FAERS Safety Report 18581172 (Version 2)
Quarter: 2021Q2

REPORT INFORMATION
  Report Type: Spontaneous
  Country: US (occurrence: US)
  Receive Date: 20201204
  Receipt Date: 20210416
  Transmission Date: 20210717
  Serious: No
  Sender: FDA-Public Use
  Company Number: US-THERATECHNOLOGIES INC.-2020-THE-TES-000295

PATIENT
  Age: 59 Year
  Sex: Male

DRUGS (1)
  1. EGRIFTA SV [Suspect]
     Active Substance: TESAMORELIN ACETATE
     Indication: PRODUCT USED FOR UNKNOWN INDICATION
     Dosage: UNK
     Route: 058
     Dates: end: 20201130

REACTIONS (3)
  - Insomnia [Unknown]
  - Blood growth hormone abnormal [Unknown]
  - Epididymitis [Recovered/Resolved]

NARRATIVE: CASE EVENT DATE: 20201128
